FAERS Safety Report 8822198 (Version 1)
Quarter: 2012Q4

REPORT INFORMATION
  Report Type: 
  Country: US (occurrence: US)
  Receive Date: 20121003
  Receipt Date: 20121003
  Transmission Date: 20130627
  Serious: No
  Sender: FDA-Public Use
  Company Number: US-PFIZER INC-2012243722

PATIENT
  Age: 54 Year
  Sex: Female
  Weight: 84.35 kg

DRUGS (7)
  1. CHANTIX [Suspect]
     Indication: SMOKING CESSATION THERAPY
     Dosage: UNK
     Dates: start: 2012, end: 2012
  2. NICOTINE [Suspect]
     Indication: SMOKING CESSATION THERAPY
     Dosage: UNK
     Dates: start: 2012, end: 2012
  3. NICOTINE POLACRILEX [Suspect]
     Indication: SMOKING CESSATION THERAPY
     Dosage: UNK, daily
     Dates: start: 2012, end: 2012
  4. LISINOPRIL [Concomitant]
     Indication: HYPERTENSION
     Dosage: 40 mg, daily
  5. OMEPRAZOLE [Concomitant]
     Indication: GASTRIC DISORDER
     Dosage: 20 mg, daily
  6. LORATADINE [Concomitant]
     Indication: HYPERSENSITIVITY
     Dosage: 10 mg, daily
  7. PAROXETINE [Concomitant]
     Indication: SWEAT GLAND DISORDER
     Dosage: 25 mg, daily

REACTIONS (3)
  - Drug ineffective [Unknown]
  - Oral discomfort [Unknown]
  - Vomiting [Unknown]
